FAERS Safety Report 24704424 (Version 1)
Quarter: 2024Q4

REPORT INFORMATION
  Report Type: Other
  Country: PR (occurrence: PR)
  Receive Date: 20241206
  Receipt Date: 20241206
  Transmission Date: 20250114
  Serious: Yes (Hospitalization, Other)
  Sender: ANI
  Company Number: PR-ANIPHARMA-013057

PATIENT
  Age: 53 Year
  Sex: Female

DRUGS (1)
  1. SULFAMETHOXAZOLE AND TRIMETHOPRIM [Suspect]
     Active Substance: SULFAMETHOXAZOLE\TRIMETHOPRIM
     Indication: Antifungal prophylaxis

REACTIONS (3)
  - Renal tubular acidosis [Recovering/Resolving]
  - Electrolyte imbalance [Recovering/Resolving]
  - Acid base balance abnormal [Recovering/Resolving]
